FAERS Safety Report 6723342-3 (Version None)
Quarter: 2010Q2

REPORT INFORMATION
  Report Type: 
  Country: None (occurrence: None)
  Receive Date: 20100511
  Receipt Date: 20100429
  Transmission Date: 20101027
  Serious: Yes (Other)
  Sender: FDA-Public Use
  Company Number: CL-114-2010

PATIENT
  Age: 67 Year
  Sex: Female

DRUGS (2)
  1. ONDANSETRON [Suspect]
     Indication: NAUSEA
     Dosage: 4 MG BD
  2. FLUOXETINE [Suspect]
     Indication: DEPRESSION
     Dosage: 60 MG

REACTIONS (7)
  - ACUTE MYOCARDIAL INFARCTION [None]
  - BLOOD MAGNESIUM DECREASED [None]
  - BLOOD POTASSIUM DECREASED [None]
  - DRUG INTERACTION [None]
  - ELECTROCARDIOGRAM T WAVE INVERSION [None]
  - STRESS CARDIOMYOPATHY [None]
  - TORSADE DE POINTES [None]
